FAERS Safety Report 6726899-1 (Version None)
Quarter: 2010Q2

REPORT INFORMATION
  Report Type: 
  Country: None (occurrence: None)
  Receive Date: 20100517
  Receipt Date: 20100507
  Transmission Date: 20101027
  Serious: Yes (Hospitalization)
  Sender: FDA-Public Use
  Company Number: 2009BI018099

PATIENT
  Age: 38 Year
  Sex: Female
  Weight: 102 kg

DRUGS (8)
  1. TYSABRI [Suspect]
     Indication: MULTIPLE SCLEROSIS
     Route: 042
     Dates: start: 20090408, end: 20100127
  2. BENADRYL [Concomitant]
     Indication: HOUSE DUST ALLERGY
     Route: 048
  3. BENADRYL [Concomitant]
     Indication: SEASONAL ALLERGY
     Route: 048
  4. EFFEXOR [Concomitant]
     Indication: GASTROOESOPHAGEAL REFLUX DISEASE
  5. PRILOSEC [Concomitant]
     Indication: GASTROOESOPHAGEAL REFLUX DISEASE
  6. NORCO [Concomitant]
     Indication: MIGRAINE
  7. KLONOPIN [Concomitant]
     Indication: MUSCLE TWITCHING
  8. IMITREX [Concomitant]
     Indication: MIGRAINE

REACTIONS (16)
  - ALOPECIA [None]
  - CONDITION AGGRAVATED [None]
  - DECREASED APPETITE [None]
  - EYE PRURITUS [None]
  - EYE SWELLING [None]
  - FATIGUE [None]
  - FEELING ABNORMAL [None]
  - FEELING COLD [None]
  - FEELING HOT [None]
  - FLUSHING [None]
  - INFLUENZA LIKE ILLNESS [None]
  - LETHARGY [None]
  - MALAISE [None]
  - MIGRAINE [None]
  - NAUSEA [None]
  - VOMITING [None]
